FAERS Safety Report 5383134-7 (Version None)
Quarter: 2007Q3

REPORT INFORMATION
  Report Type: 
  Country: None (occurrence: None)
  Receive Date: 20070710
  Receipt Date: 20070701
  Transmission Date: 20080115
  Serious: Yes (Hospitalization)
  Sender: FDA-Public Use
  Company Number: US-ELI_LILLY_AND_COMPANY-US200707000686

PATIENT
  Age: 69 Year
  Sex: Male
  Weight: 122 kg

DRUGS (17)
  1. BYETTA [Suspect]
     Indication: TYPE 2 DIABETES MELLITUS
     Dosage: 5 UG, 2/D
     Route: 058
     Dates: start: 20061228, end: 20070301
  2. BYETTA [Suspect]
     Dosage: 10 UG, 2/D
     Route: 058
     Dates: start: 20070301, end: 20070401
  3. BYETTA [Suspect]
     Dosage: 5 UG, 2/D
     Route: 058
     Dates: start: 20070401
  4. LEVEMIR [Concomitant]
     Indication: TYPE 2 DIABETES MELLITUS
     Dosage: 25 U, EACH EVENING
     Route: 058
     Dates: start: 20070501
  5. HUMULIN MIX [Concomitant]
     Indication: TYPE 2 DIABETES MELLITUS
     Dosage: UNK, UNKNOWN
     Route: 058
     Dates: end: 20061227
  6. HUMULIN MIX [Concomitant]
     Dosage: 30 U, EACH MORNING
     Route: 058
     Dates: start: 20061228, end: 20070501
  7. HUMULIN MIX [Concomitant]
     Dosage: 15 U, EACH EVENING
     Route: 058
     Dates: start: 20061228, end: 20070501
  8. HUMULIN MIX [Concomitant]
     Dosage: 15 U, EACH MORNING
     Route: 058
     Dates: start: 20070501, end: 20070601
  9. HUMULIN MIX [Concomitant]
     Dosage: 5 U, EACH EVENING
     Route: 058
     Dates: start: 20070501
  10. GLIMEPIRIDE [Concomitant]
     Indication: TYPE 2 DIABETES MELLITUS
     Dosage: 4 MG, DAILY (1/D)
     Route: 048
     Dates: start: 20070501
  11. ROSIGLITAZONE [Concomitant]
     Indication: TYPE 2 DIABETES MELLITUS
     Dosage: 4 MG, DAILY (1/D)
     Route: 048
     Dates: start: 20070501
  12. LEVOXYL [Concomitant]
     Indication: THYROID THERAPY
     Dosage: 25 MG, DAILY (1/D)
     Route: 058
  13. LISINOPRIL [Concomitant]
     Indication: PROPHYLAXIS
     Dosage: 40 MG, DAILY (1/D)
     Route: 048
  14. GABAPENTIN [Concomitant]
     Indication: DIABETIC NEUROPATHY
     Dosage: 300 MG, 2/D
     Route: 048
  15. ASPIRIN [Concomitant]
     Indication: PROPHYLAXIS
     Dosage: 81 MG, DAILY (1/D)
     Route: 048
  16. VITAMIN B COMPLEX CAP [Concomitant]
     Dosage: UNK, DAILY (1/D)
     Route: 048
  17. FISH OIL [Concomitant]
     Dosage: 3000 MG, DAILY (1/D)
     Route: 048

REACTIONS (8)
  - BLOOD GLUCOSE DECREASED [None]
  - BLOOD PRESSURE DECREASED [None]
  - DECREASED APPETITE [None]
  - DIZZINESS [None]
  - FEELING ABNORMAL [None]
  - INNER EAR DISORDER [None]
  - NAUSEA [None]
  - WEIGHT DECREASED [None]
